FAERS Safety Report 12076246 (Version 1)
Quarter: 2016Q1

REPORT INFORMATION
  Report Type: Spontaneous
  Country: US (occurrence: US)
  Receive Date: 20160215
  Receipt Date: 20160215
  Transmission Date: 20160526
  Serious: No
  Sender: FDA-Public Use
  Company Number: US-009507513-1602USA006592

PATIENT
  Age: 55 Year
  Sex: Female

DRUGS (2)
  1. CUBICIN [Suspect]
     Active Substance: DAPTOMYCIN
     Dosage: 1000 MG, UNK
     Route: 042
     Dates: start: 20151211, end: 20151224
  2. CUBICIN [Suspect]
     Active Substance: DAPTOMYCIN
     Dosage: 1000 MG, UNK
     Route: 042
     Dates: start: 20150622, end: 20150622

REACTIONS (1)
  - Inappropriate schedule of drug administration [Unknown]

NARRATIVE: CASE EVENT DATE: 20150623
